FAERS Safety Report 4973468-X (Version None)
Quarter: 2006Q2

REPORT INFORMATION
  Report Type: 
  Country: None (occurrence: None)
  Receive Date: 20060413
  Receipt Date: 20060413
  Transmission Date: 20061013
  Serious: Yes (Life-Threatening)
  Sender: FDA-Public Use
  Company Number: None

PATIENT
  Age: 58 Year
  Sex: Female
  Weight: 104 kg

DRUGS (15)
  1. MEPERIDINE HCL [Suspect]
     Indication: PAIN
     Dosage: 75 MG IV NOW
     Route: 042
     Dates: start: 20060120
  2. PROMETHAZINE [Suspect]
     Indication: NAUSEA
     Dosage: 6.25 MG IV NOW
     Route: 042
     Dates: start: 20060120
  3. DIGOXIN [Concomitant]
  4. ATENOLOL [Concomitant]
  5. LOVASTATIN [Concomitant]
  6. PLAVIX [Concomitant]
  7. LASIX [Concomitant]
  8. VASOTEC [Concomitant]
  9. ASPIRIN [Concomitant]
  10. ALDACTONE [Concomitant]
  11. HUMULIN 70/30 [Concomitant]
  12. NEURONTIN [Concomitant]
  13. COLCHICINE [Concomitant]
  14. METFORMIN [Concomitant]
  15. OMEPRAZOLE [Concomitant]

REACTIONS (2)
  - CARDIO-RESPIRATORY ARREST [None]
  - SHOULDER PAIN [None]
